FAERS Safety Report 5246153-7 (Version None)
Quarter: 2007Q1

REPORT INFORMATION
  Report Type: 
  Country: None (occurrence: None)
  Receive Date: 20070220
  Receipt Date: 20070131
  Transmission Date: 20070707
  Serious: Yes (Death)
  Sender: FDA-Public Use
  Company Number: 0710002

PATIENT
  Sex: Female

DRUGS (1)
  1. NITISINONE/COMPASS.USE [Suspect]
     Indication: TYROSINAEMIA
     Dosage: 5 MILLIGRAM A DAY, ORAL
     Route: 048
     Dates: start: 20050302, end: 20050930

REACTIONS (1)
  - DEATH [None]
